FAERS Safety Report 15761222 (Version 1)
Quarter: 2018Q4

REPORT INFORMATION
  Report Type: Spontaneous
  Country: US (occurrence: US)
  Receive Date: 20181226
  Receipt Date: 20181226
  Transmission Date: 20190205
  Serious: Yes (Other)
  Sender: FDA-Public Use
  Company Number: US-PFIZER INC-2018522347

PATIENT
  Age: 51 Year
  Sex: Male
  Weight: 92.99 kg

DRUGS (2)
  1. LYRICA [Suspect]
     Active Substance: PREGABALIN
     Indication: NERVE INJURY
  2. LYRICA [Suspect]
     Active Substance: PREGABALIN
     Indication: NEUROPATHY PERIPHERAL
     Dosage: 300 MG, 2X/DAY
     Route: 048
     Dates: end: 201811

REACTIONS (8)
  - Pain [Unknown]
  - Hypoaesthesia [Not Recovered/Not Resolved]
  - Drug dependence [Unknown]
  - Nasopharyngitis [Unknown]
  - Limb discomfort [Unknown]
  - Withdrawal syndrome [Not Recovered/Not Resolved]
  - Chills [Unknown]
  - Pyrexia [Unknown]

NARRATIVE: CASE EVENT DATE: 201811
